FAERS Safety Report 5781495-8 (Version None)
Quarter: 2008Q2

REPORT INFORMATION
  Report Type: 
  Country: None (occurrence: None)
  Receive Date: 20080623
  Receipt Date: 20080616
  Transmission Date: 20081010
  Serious: Yes (Life-Threatening, Hospitalization, Other)
  Sender: FDA-Public Use
  Company Number: US-BAYER-200818399NA

PATIENT
  Age: 79 Year
  Sex: Female

DRUGS (8)
  1. ULTRAVIST 300 [Suspect]
     Indication: COMPUTERISED TOMOGRAM THORAX
     Dosage: TOTAL DAILY DOSE: 100 ML
     Dates: start: 20080331, end: 20080331
  2. SPIRIVA [Concomitant]
  3. ADVAIR DISKUS 100/50 [Concomitant]
  4. ENALAPRIL MALEATE [Concomitant]
  5. HYDROCODONE [Concomitant]
  6. OXYGEN [Concomitant]
     Route: 045
  7. ROCEPHIN [Concomitant]
  8. ALBUTEROL NEBULIZERS [Concomitant]

REACTIONS (6)
  - ANAPHYLACTIC SHOCK [None]
  - CARDIO-RESPIRATORY ARREST [None]
  - FAECAL INCONTINENCE [None]
  - SNEEZING [None]
  - URINARY INCONTINENCE [None]
  - WHEEZING [None]
